FAERS Safety Report 16378274 (Version 1)
Quarter: 2019Q2

REPORT INFORMATION
  Report Type: Spontaneous
  Country: US (occurrence: US)
  Receive Date: 20190531
  Receipt Date: 20190531
  Transmission Date: 20190711
  Serious: No
  Sender: FDA-Public Use
  Company Number: US-TEVA-2019-US-1051674

PATIENT
  Sex: Female

DRUGS (1)
  1. HYDROCHLOROTHIAZIDE W/LOSARTAN [Suspect]
     Active Substance: HYDROCHLOROTHIAZIDE\LOSARTAN
     Dosage: DOSE STRENGTH:  50 MG/12.5 MG
     Route: 065

REACTIONS (4)
  - Culture stool positive [Unknown]
  - Abdominal pain [Unknown]
  - Abnormal faeces [Unknown]
  - Anal incontinence [Unknown]

NARRATIVE: CASE EVENT DATE: 201901
